FAERS Safety Report 8025347-1 (Version None)
Quarter: 2012Q1

REPORT INFORMATION
  Report Type: 
  Country: None (occurrence: None)
  Receive Date: 20120105
  Receipt Date: 20120103
  Transmission Date: 20120608
  Serious: Yes (Hospitalization)
  Sender: FDA-Public Use
  Company Number: US-ELI_LILLY_AND_COMPANY-US201201000967

PATIENT
  Sex: Female

DRUGS (2)
  1. HUMALOG MIX 75/25 [Suspect]
     Dosage: UNK
     Dates: start: 20110601
  2. HUMALOG MIX 75/25 [Suspect]
     Dosage: UNK
     Dates: start: 20110601

REACTIONS (3)
  - CARDIAC DISORDER [None]
  - DRUG DOSE OMISSION [None]
  - CHRONIC OBSTRUCTIVE PULMONARY DISEASE [None]
